FAERS Safety Report 13255439 (Version 1)
Quarter: 2017Q1

REPORT INFORMATION
  Report Type: Spontaneous
  Country: US (occurrence: US)
  Receive Date: 20170221
  Receipt Date: 20170221
  Transmission Date: 20170428
  Serious: Yes (Hospitalization)
  Sender: FDA-Public Use
  Company Number: US-FRESENIUS MEDICAL CARE RENAL THERAPIES GROUP-FMC-1702-000353

PATIENT
  Age: 62 Year
  Sex: Female
  Weight: 98.52 kg

DRUGS (7)
  1. DELFLEX [Suspect]
     Active Substance: CALCIUM CHLORIDE\DEXTROSE\MAGNESIUM CHLORIDE\SODIUM CHLORIDE\SODIUM LACTATE
     Indication: END STAGE RENAL DISEASE
     Route: 033
     Dates: start: 20170102
  2. APIDRA [Concomitant]
     Active Substance: INSULIN GLULISINE
  3. COREG [Concomitant]
     Active Substance: CARVEDILOL
  4. NITROSTAT [Concomitant]
     Active Substance: NITROGLYCERIN
  5. ERGOCALCIFEROL. [Concomitant]
     Active Substance: ERGOCALCIFEROL
  6. LANTUS [Concomitant]
     Active Substance: INSULIN GLARGINE
  7. METOLAZONE. [Concomitant]
     Active Substance: METOLAZONE

REACTIONS (2)
  - Hypervolaemia [Recovered/Resolved]
  - Cardiac failure congestive [Recovered/Resolved]

NARRATIVE: CASE EVENT DATE: 20170113
